FAERS Safety Report 14690271 (Version 2)
Quarter: 2018Q3

REPORT INFORMATION
  Report Type: Spontaneous
  Country: GR (occurrence: GR)
  Receive Date: 20180328
  Receipt Date: 20180806
  Transmission Date: 20181010
  Serious: Yes (Hospitalization, Other)
  Sender: FDA-Public Use
  Company Number: GR-MYLANLABS-2018M1018038

PATIENT
  Age: 70 Year
  Sex: Male

DRUGS (14)
  1. FUROSEMIDE. [Suspect]
     Active Substance: FUROSEMIDE
     Indication: HYPERTENSION
  2. RAMIPRIL. [Suspect]
     Active Substance: RAMIPRIL
     Indication: HYPERTENSION
  3. NITROGLYCERINE [Concomitant]
     Active Substance: NITROGLYCERIN
     Indication: NITRATE COMPOUND THERAPY
  4. FUROSEMIDE. [Suspect]
     Active Substance: FUROSEMIDE
     Indication: DIURETIC THERAPY
     Dosage: UNK
     Route: 065
  5. RIVAROXABAN [Suspect]
     Active Substance: RIVAROXABAN
     Indication: ATRIAL FIBRILLATION
  6. EPLERENONE. [Suspect]
     Active Substance: EPLERENONE
     Indication: DIURETIC THERAPY
     Route: 065
  7. EPLERENONE. [Suspect]
     Active Substance: EPLERENONE
     Indication: HYPERTENSION
  8. RIVAROXABAN [Suspect]
     Active Substance: RIVAROXABAN
     Indication: DRUG THERAPY
     Dosage: UNK
     Route: 065
  9. RAMIPRIL. [Suspect]
     Active Substance: RAMIPRIL
     Indication: DRUG THERAPY
     Dosage: UNK
     Route: 065
  10. GLYCERYL TRINITRATE [Suspect]
     Active Substance: NITROGLYCERIN
     Indication: NITRATE COMPOUND THERAPY
     Dosage: UNK
  11. GLYCERYL TRINITRATE [Suspect]
     Active Substance: NITROGLYCERIN
     Indication: CARDIAC FAILURE
  12. DIGOXIN. [Suspect]
     Active Substance: DIGOXIN
     Indication: CARDIAC FAILURE
  13. CARVEDILOL. [Suspect]
     Active Substance: CARVEDILOL
     Indication: DRUG THERAPY
     Dosage: UNK
  14. CARVEDILOL. [Suspect]
     Active Substance: CARVEDILOL
     Indication: HYPERTENSION

REACTIONS (20)
  - Arrhythmia [Unknown]
  - Ejection fraction decreased [Unknown]
  - Atrial fibrillation [Unknown]
  - Cardiac murmur [Unknown]
  - Tricuspid valve incompetence [Unknown]
  - Mitral valve incompetence [Unknown]
  - Jugular vein distension [Unknown]
  - Fatigue [Unknown]
  - Pulmonary arterial pressure increased [Unknown]
  - Orthopnoea [Unknown]
  - Renal impairment [Unknown]
  - Abdominal rigidity [Unknown]
  - Cardiac failure [Unknown]
  - Liver palpable [Unknown]
  - Treatment failure [Unknown]
  - Drug ineffective [Unknown]
  - Bundle branch block left [Unknown]
  - Normochromic anaemia [Unknown]
  - Dyspnoea [Unknown]
  - Disease progression [Unknown]
